FAERS Safety Report 7587322-0 (Version None)
Quarter: 2011Q3

REPORT INFORMATION
  Report Type: 
  Country: None (occurrence: None)
  Receive Date: 20110701
  Receipt Date: 20110622
  Transmission Date: 20111222
  Serious: Yes (Other)
  Sender: FDA-Public Use
  Company Number: US-AMGEN-USASP2011028279

PATIENT
  Age: 70 Year
  Sex: Male
  Weight: 108.84 kg

DRUGS (9)
  1. KLOR-CON [Concomitant]
  2. MAGNESIUM [Concomitant]
  3. ENBREL [Suspect]
     Indication: PSORIASIS
     Dosage: 50 MG, QWK
     Dates: start: 20110311, end: 20110520
  4. PLAVIX [Concomitant]
  5. GLUCOSAMINE [Concomitant]
  6. METOPROLOL TARTRATE [Concomitant]
  7. FOLIC ACID [Concomitant]
  8. FUROSEMIDE [Concomitant]
  9. CO Q-10 [Concomitant]

REACTIONS (3)
  - PSORIASIS [None]
  - PALPITATIONS [None]
  - ASTHENIA [None]
